FAERS Safety Report 6114659-4 (Version None)
Quarter: 2009Q1

REPORT INFORMATION
  Report Type: 
  Country: None (occurrence: None)
  Receive Date: 20090313
  Receipt Date: 20090305
  Transmission Date: 20090719
  Serious: Yes (Death, Hospitalization)
  Sender: FDA-Public Use
  Company Number: US-BIOGENIDEC-2009BI006860

PATIENT
  Age: 66 Year
  Sex: Male

DRUGS (2)
  1. AVONEX [Suspect]
     Indication: MULTIPLE SCLEROSIS
     Route: 030
     Dates: start: 20030901
  2. AVONEX [Suspect]
     Route: 030
     Dates: start: 20010501, end: 20030801

REACTIONS (6)
  - GALLBLADDER OPERATION [None]
  - GASTROINTESTINAL DISORDER POSTOPERATIVE [None]
  - LUNG INJURY [None]
  - POST PROCEDURAL PNEUMONIA [None]
  - PROCEDURAL COMPLICATION [None]
  - VOLVULUS [None]
